FAERS Safety Report 18984586 (Version 2)
Quarter: 2021Q1

REPORT INFORMATION
  Report Type: Report from Study
  Country: None (occurrence: None)
  Receive Date: 20210308
  Receipt Date: 20210325
  Transmission Date: 20210420
  Serious: No
  Sender: FDA-Public Use
  Company Number: US-AKORN-161498

PATIENT
  Age: 68 Year
  Sex: Male

DRUGS (1)
  1. GABAPENTIN ORAL SOLUTION [Suspect]
     Active Substance: GABAPENTIN

REACTIONS (5)
  - Inappropriate schedule of product administration [Unknown]
  - Constipation [Unknown]
  - Insomnia [None]
  - Drug interaction [Unknown]
  - Dry mouth [Unknown]

NARRATIVE: CASE EVENT DATE: 20201227
